FAERS Safety Report 4491460-9 (Version None)
Quarter: 2004Q3

REPORT INFORMATION
  Report Type: 
  Country: None (occurrence: None)
  Receive Date: 20040921
  Receipt Date: 20030723
  Transmission Date: 20050211
  Serious: Yes (Death)
  Sender: FDA-Public Use
  Company Number: 163-20785-03070538

PATIENT
  Age: 51 Year
  Sex: Female

DRUGS (3)
  1. THALOMID [Suspect]
     Indication: MULTIPLE MYELOMA
     Dosage: ORAL
     Route: 048
     Dates: start: 19990415, end: 19990607
  2. THALOMID [Suspect]
     Indication: MULTIPLE MYELOMA
     Dosage: ORAL
     Route: 048
     Dates: start: 19990607, end: 19990906
  3. THALOMID [Suspect]
     Indication: MULTIPLE MYELOMA
     Dosage: ORAL
     Route: 048
     Dates: start: 20000621, end: 20000928

REACTIONS (10)
  - BACTERAEMIA [None]
  - CARDIAC ARREST [None]
  - DEATH [None]
  - DISTURBANCE IN ATTENTION [None]
  - HYPERHIDROSIS [None]
  - HYPOTENSION [None]
  - PYREXIA [None]
  - RESPIRATORY DISTRESS [None]
  - SEPSIS [None]
  - TACHYCARDIA [None]
